FAERS Safety Report 7723954-4 (Version None)
Quarter: 2011Q3

REPORT INFORMATION
  Report Type: 
  Country: None (occurrence: None)
  Receive Date: 20110901
  Receipt Date: 20110819
  Transmission Date: 20111222
  Serious: Yes (Hospitalization)
  Sender: FDA-Public Use
  Company Number: US-ELI_LILLY_AND_COMPANY-US201101004765

PATIENT
  Sex: Female

DRUGS (17)
  1. NORVASC [Concomitant]
     Dosage: UNK, 3/W
  2. OXYCODONE HCL [Concomitant]
     Dosage: 5 MG, BID
  3. HYDROCHLOROTHIAZIDE [Concomitant]
     Dosage: UNK, 2/W
  4. VITAMIN B [Concomitant]
  5. AVAPRO [Concomitant]
     Dosage: 150 MG, UNK
  6. FISH OIL [Concomitant]
  7. FORTEO [Suspect]
     Indication: OSTEOPOROSIS
     Dosage: 20 UG, DAILY (1/D)
     Dates: start: 20101210
  8. SYNTHROID [Concomitant]
     Indication: THYROID DISORDER
  9. VITAMIN D [Concomitant]
  10. FORTEO [Suspect]
     Dosage: 20 UG, DAILY (1/D)
     Dates: end: 20110116
  11. VALIUM [Concomitant]
     Dosage: 5 MG, BID
  12. COLECALCIFEROL [Concomitant]
  13. PANTOPRAZOLE [Concomitant]
     Indication: GASTROOESOPHAGEAL REFLUX DISEASE
  14. ASPIRIN [Concomitant]
     Dosage: 81 MG, QD
  15. FORTEO [Suspect]
     Dosage: 20 UG, QD
  16. PRACTOLOL [Concomitant]
  17. ADVIL LIQUI-GELS [Concomitant]

REACTIONS (13)
  - BLOOD SODIUM DECREASED [None]
  - ASTHENIA [None]
  - ERYTHEMA [None]
  - DIZZINESS [None]
  - SYNCOPE [None]
  - HYPOTENSION [None]
  - NERVE COMPRESSION [None]
  - OEDEMA PERIPHERAL [None]
  - FATIGUE [None]
  - BACK PAIN [None]
  - MALAISE [None]
  - CONFUSIONAL STATE [None]
  - BLADDER DILATATION [None]
